FAERS Safety Report 18855900 (Version 1)
Quarter: 2021Q1

REPORT INFORMATION
  Report Type: Spontaneous
  Country: SK (occurrence: SK)
  Receive Date: 20210206
  Receipt Date: 20210206
  Transmission Date: 20210420
  Serious: Yes (Other)
  Sender: FDA-Public Use
  Company Number: SK-SA-2020SA271006

PATIENT
  Age: 43 Year
  Sex: Female
  Weight: 65 kg

DRUGS (3)
  1. LEMTRADA [Suspect]
     Active Substance: ALEMTUZUMAB
     Indication: MULTIPLE SCLEROSIS
     Dosage: UNK
     Route: 042
     Dates: start: 20190211, end: 20190211
  2. LEMTRADA [Suspect]
     Active Substance: ALEMTUZUMAB
     Dosage: 10 MG/ML
     Route: 042
     Dates: start: 20200211, end: 20200215
  3. MAVENCLAD [Concomitant]
     Active Substance: CLADRIBINE
     Indication: MULTIPLE SCLEROSIS
     Dosage: UNK
     Dates: start: 20200818

REACTIONS (28)
  - Dyspnoea [Unknown]
  - Weight decreased [Recovered/Resolved]
  - Blood triglycerides increased [Unknown]
  - Hyperhidrosis [Unknown]
  - Anti-thyroid antibody positive [Unknown]
  - Palpitations [Unknown]
  - Thyroid gland scan abnormal [Unknown]
  - Multiple sclerosis relapse [Unknown]
  - Balance disorder [Unknown]
  - Blood cholesterol increased [Unknown]
  - Lymphocyte percentage increased [Unknown]
  - Fall [Unknown]
  - Hyperthyroidism [Unknown]
  - Thyroxine increased [Recovered/Resolved]
  - Anti-thyroid antibody positive [Unknown]
  - Cold sweat [Unknown]
  - White blood cell count decreased [Unknown]
  - Blood thyroid stimulating hormone abnormal [Unknown]
  - Weight increased [Unknown]
  - Alanine aminotransferase increased [Unknown]
  - Tremor [Unknown]
  - Vertigo [Unknown]
  - Basedow^s disease [Unknown]
  - Tri-iodothyronine increased [Recovered/Resolved]
  - Thyroid stimulating immunoglobulin increased [Unknown]
  - Blood thyroid stimulating hormone decreased [Unknown]
  - Blood alkaline phosphatase increased [Unknown]
  - Leukopenia [Unknown]

NARRATIVE: CASE EVENT DATE: 2020
